FAERS Safety Report 8573860-0 (Version None)
Quarter: 2012Q3

REPORT INFORMATION
  Report Type: 
  Country: None (occurrence: None)
  Receive Date: 20120806
  Receipt Date: 20111212
  Transmission Date: 20120928
  Serious: No
  Sender: FDA-Public Use
  Company Number: US-GLAXOSMITHKLINE-A0957707A

PATIENT
  Age: 54 Year
  Sex: Female

DRUGS (8)
  1. COREG [Concomitant]
  2. PREDNISONE [Concomitant]
  3. SYNTHROID [Concomitant]
  4. SPIRONOLACTONE [Concomitant]
  5. VENTOLIN [Suspect]
     Indication: DYSPNOEA
     Dosage: 2PUFF AS REQUIRED
     Route: 055
     Dates: start: 20111013
  6. AVELOX [Concomitant]
  7. ASPIRIN [Concomitant]
  8. FLUTICASONE PROPIONATE [Suspect]
     Indication: DYSPNOEA
     Dosage: 2PUFF TWICE PER DAY
     Route: 055
     Dates: start: 20111013, end: 20111018

REACTIONS (5)
  - LIP PRURITUS [None]
  - PRURITUS [None]
  - SKIN EXFOLIATION [None]
  - DRY SKIN [None]
  - LACRIMATION DECREASED [None]
